FAERS Safety Report 7025552 (Version 4)
Quarter: 2013Q4

REPORT INFORMATION
  Report Type: Report from Study
  Country: US (occurrence: US)
  Receive Date: 20090617
  Receipt Date: 20131115
  Transmission Date: 20140711
  Serious: Yes (Hospitalization, Other)
  Sender: FDA-Public Use
  Company Number: US-ASTRAZENECA-2009UW14851

PATIENT
  Age: 82 Year
  Sex: Female
  Weight: 75.7 kg

DRUGS (12)
  1. NEXIUM [Suspect]
     Route: 048
     Dates: start: 20070322, end: 20090114
  2. CELECOXIB, IBUPROFEN, NAPROXEN, PLACEBO [Suspect]
     Indication: OSTEOARTHRITIS
     Dosage: THREE TIMES A DAY
     Route: 048
     Dates: start: 20070322, end: 20090114
  3. CELECOXIB, IBUPROFEN, NAPROXEN, PLACEBO [Suspect]
     Indication: OSTEOARTHRITIS
     Route: 048
  4. DARIFENACIN HYDROBROMIDE [Concomitant]
     Dates: start: 20051209
  5. LASIX [Concomitant]
     Dates: start: 20060814
  6. VITAMIN B6 [Concomitant]
     Dates: start: 20061031
  7. LOTREL [Concomitant]
     Dates: start: 20061205
  8. TOPROL XL [Concomitant]
     Dates: start: 20061220
  9. LEXAPRO [Concomitant]
     Dates: start: 20080514
  10. ULTRAM [Concomitant]
     Dates: start: 20080922
  11. ROBAXIN [Concomitant]
     Dates: start: 20080922
  12. DARVOCET [Concomitant]
     Dates: start: 20080922

REACTIONS (1)
  - Cardiac failure congestive [Recovered/Resolved]
